FAERS Safety Report 12637935 (Version 2)
Quarter: 2017Q2

REPORT INFORMATION
  Report Type: Spontaneous
  Country: US (occurrence: US)
  Receive Date: 20160809
  Receipt Date: 20170503
  Transmission Date: 20170830
  Serious: No
  Sender: FDA-Public Use
  Company Number: US-SA-2016SA099029

PATIENT
  Age: 67 Year
  Sex: Male

DRUGS (12)
  1. TADALAFIL [Concomitant]
     Active Substance: TADALAFIL
  2. METOPROLOL. [Concomitant]
     Active Substance: METOPROLOL
  3. PRALUENT [Suspect]
     Active Substance: ALIROCUMAB
     Indication: BLOOD CHOLESTEROL
     Route: 065
     Dates: start: 20160510
  4. ALIROCUMAB PREFILLED PEN [Concomitant]
     Active Substance: ALIROCUMAB
     Indication: BLOOD CHOLESTEROL
     Dates: start: 20160510
  5. FEBUXOSTAT. [Concomitant]
     Active Substance: FEBUXOSTAT
  6. PREDNISONE. [Concomitant]
     Active Substance: PREDNISONE
  7. ASPIRIN. [Concomitant]
     Active Substance: ASPIRIN
  8. DICLOFENAC [Concomitant]
     Active Substance: DICLOFENAC
     Route: 061
  9. WARFARIN [Concomitant]
     Active Substance: WARFARIN
  10. AMIODARONE [Concomitant]
     Active Substance: AMIODARONE
  11. FUROSEMIDE. [Concomitant]
     Active Substance: FUROSEMIDE
  12. OLOPATADINE. [Concomitant]
     Active Substance: OLOPATADINE

REACTIONS (2)
  - Injection site irritation [Recovered/Resolved]
  - Injection site pain [Recovered/Resolved]

NARRATIVE: CASE EVENT DATE: 20160519
